FAERS Safety Report 24405868 (Version 5)
Quarter: 2025Q1

REPORT INFORMATION
  Report Type: Other
  Country: US (occurrence: US)
  Receive Date: 20241007
  Receipt Date: 20250207
  Transmission Date: 20250409
  Serious: Yes (Hospitalization)
  Sender: RHYTHM PHARMACEUTICALS, INC.
  Company Number: US-PPDUS-2024RHM000558

PATIENT
  Age: 27 Year
  Sex: Male

DRUGS (14)
  1. IMCIVREE [Suspect]
     Active Substance: SETMELANOTIDE
     Indication: Laurence-Moon-Bardet-Biedl syndrome
     Dosage: 2 MG (0.2 ML) SUBCUTANEOUSLY ONCE DAILY FOR 2 WEEKS, THEN INJECT 3 MG (0.3 ML) ONCE DAILY THEREAFTER
     Route: 058
  2. IMCIVREE [Suspect]
     Active Substance: SETMELANOTIDE
     Dosage: 2 MG (0.2 ML) SUBCUTANEOUSLY ONCE DAILY FOR 2 WEEKS, THEN INJECT 3 MG (0.3 ML) ONCE DAILY THEREAFTER
     Route: 058
  3. IMCIVREE [Suspect]
     Active Substance: SETMELANOTIDE
     Route: 058
  4. IMCIVREE [Suspect]
     Active Substance: SETMELANOTIDE
     Route: 058
  5. IMCIVREE [Suspect]
     Active Substance: SETMELANOTIDE
     Route: 058
  6. VITAMIN D2 [Concomitant]
     Active Substance: ERGOCALCIFEROL
     Indication: Product used for unknown indication
     Route: 065
  7. AMLODIPINE [Concomitant]
     Active Substance: AMLODIPINE BESYLATE
     Indication: Product used for unknown indication
     Route: 065
  8. ATORVASTATIN [Concomitant]
     Active Substance: ATORVASTATIN
     Indication: Product used for unknown indication
     Route: 065
  9. FENOFIBRATE AND DERIVATIVES [Concomitant]
     Indication: Product used for unknown indication
     Route: 065
  10. LISINOPRIL [Concomitant]
     Active Substance: LISINOPRIL
     Indication: Product used for unknown indication
     Route: 065
  11. METOPROLOL [Concomitant]
     Active Substance: METOPROLOL
     Indication: Product used for unknown indication
     Route: 065
  12. OMEGA-3 FATTY ACIDS [Concomitant]
     Active Substance: OMEGA-3 FATTY ACIDS
     Indication: Product used for unknown indication
     Route: 065
  13. VITAMIN A [Concomitant]
     Active Substance: VITAMIN A
     Indication: Product used for unknown indication
     Route: 065
  14. VITAMIN D3 [Concomitant]
     Active Substance: CHOLECALCIFEROL
     Indication: Product used for unknown indication
     Route: 065

REACTIONS (15)
  - Hypoacusis [Recovering/Resolving]
  - Presyncope [Recovering/Resolving]
  - Fall [Recovering/Resolving]
  - Conversion disorder [Recovering/Resolving]
  - Illness [Unknown]
  - Abnormal behaviour [Not Recovered/Not Resolved]
  - Defaecation urgency [Not Recovered/Not Resolved]
  - Product dose omission in error [Recovered/Resolved]
  - Ocular hyperaemia [Not Recovered/Not Resolved]
  - Mental disorder [Not Recovered/Not Resolved]
  - Dizziness [Recovering/Resolving]
  - Abdominal pain upper [Not Recovered/Not Resolved]
  - Diarrhoea [Recovered/Resolved]
  - Nausea [Recovered/Resolved]
  - Vomiting [Unknown]

NARRATIVE: CASE EVENT DATE: 20240901
